FAERS Safety Report 5918396-8 (Version None)
Quarter: 2008Q4

REPORT INFORMATION
  Report Type: 
  Country: None (occurrence: None)
  Receive Date: 20081015
  Receipt Date: 20081009
  Transmission Date: 20090506
  Serious: Yes (Other)
  Sender: FDA-Public Use
  Company Number: GB-SP-2008-03143

PATIENT
  Sex: Female

DRUGS (1)
  1. IMMUCYST [Suspect]
     Dosage: NOT REPORTED
     Route: 065
     Dates: end: 20080807

REACTIONS (7)
  - EYE PAIN [None]
  - GAIT DISTURBANCE [None]
  - OCULAR HYPERAEMIA [None]
  - PAIN [None]
  - PHOTOPHOBIA [None]
  - TENDONITIS [None]
  - UVEITIS [None]
